FAERS Safety Report 6451497-7 (Version None)
Quarter: 2009Q4

REPORT INFORMATION
  Report Type: 
  Country: None (occurrence: None)
  Receive Date: 20091123
  Receipt Date: 20090709
  Transmission Date: 20100525
  Serious: No
  Sender: FDA-Public Use
  Company Number: US-BRISTOL-MYERS SQUIBB COMPANY-14696090

PATIENT
  Age: 89 Year
  Sex: Female
  Weight: 81 kg

DRUGS (10)
  1. AVALIDE [Suspect]
     Dosage: 1 DF = 300MG/12.5MG
  2. AVAPRO [Suspect]
  3. CRESTOR [Concomitant]
  4. METOPROLOL TARTRATE [Concomitant]
  5. MAGNESIUM [Concomitant]
  6. WARFARIN [Concomitant]
     Dosage: WARFARIN TARO BRAND
  7. LOVAZA [Concomitant]
     Dosage: REDUCED FROM BID TO QD 3 TO 4 DAYS AGO
  8. CLONIDINE [Concomitant]
     Dosage: AS NEEDED ONCE DAILY OR BID IF BLOOD PRESSURE IS OVER 160
  9. VITAMIN D [Concomitant]
  10. CALCIUM [Concomitant]

REACTIONS (6)
  - DIZZINESS [None]
  - DRY MOUTH [None]
  - HEADACHE [None]
  - PARAESTHESIA [None]
  - PYREXIA [None]
  - RHINORRHOEA [None]
